FAERS Safety Report 7029734-X (Version None)
Quarter: 2010Q4

REPORT INFORMATION
  Report Type: 
  Country: None (occurrence: None)
  Receive Date: 20101005
  Receipt Date: 20101005
  Transmission Date: 20110411
  Serious: Yes (Other)
  Sender: FDA-Public Use
  Company Number: None

PATIENT
  Age: 51 Year
  Sex: Female
  Weight: 82.5547 kg

DRUGS (1)
  1. ACTONEL [Suspect]
     Indication: OSTEOARTHRITIS
     Dosage: PER MONTH PO
     Route: 048
     Dates: start: 20101001, end: 20101001

REACTIONS (6)
  - ABDOMINAL PAIN UPPER [None]
  - ARTHRALGIA [None]
  - BEDRIDDEN [None]
  - DIARRHOEA [None]
  - FATIGUE [None]
  - HEADACHE [None]
